FAERS Safety Report 15675162 (Version 1)
Quarter: 2018Q4

REPORT INFORMATION
  Report Type: Spontaneous
  Country: SD (occurrence: SD)
  Receive Date: 20181129
  Receipt Date: 20181129
  Transmission Date: 20190205
  Serious: Yes (Hospitalization, Disabling)
  Sender: FDA-Public Use
  Company Number: None

PATIENT
  Age: 50 Year
  Sex: Female
  Weight: 60 kg

DRUGS (1)
  1. LINEZOLID. [Suspect]
     Active Substance: LINEZOLID
     Dates: start: 20170202, end: 20181113

REACTIONS (9)
  - Diarrhoea [None]
  - Visual impairment [None]
  - Temperature intolerance [None]
  - Pancytopenia [None]
  - Transfusion [None]
  - Dizziness [None]
  - Grip strength decreased [None]
  - Hypoaesthesia [None]
  - Vomiting [None]
